FAERS Safety Report 8815852 (Version 1)
Quarter: 2012Q4

REPORT INFORMATION
  Report Type: Report from Study
  Country: JP (occurrence: JP)
  Receive Date: 20120928
  Receipt Date: 20120928
  Transmission Date: 20130627
  Serious: Yes (Death, Life-Threatening, Hospitalization, Other)
  Sender: FDA-Public Use
  Company Number: JP-ASTRAZENECA-2011SE73185

PATIENT
  Age: 29489 Day
  Sex: Male

DRUGS (10)
  1. AZD6140 [Suspect]
     Indication: ACUTE CORONARY SYNDROME
     Route: 048
     Dates: start: 20110729
  2. PLACEBO [Suspect]
     Indication: ACUTE CORONARY SYNDROME
     Route: 048
     Dates: start: 20110729, end: 20111202
  3. BAYASPIRIN [Suspect]
     Indication: ACUTE CORONARY SYNDROME
     Route: 048
     Dates: start: 20110729, end: 20110729
  4. BAYASPIRIN [Suspect]
     Indication: ACUTE CORONARY SYNDROME
     Route: 048
     Dates: start: 20110730, end: 20111202
  5. CRESTOR [Concomitant]
     Indication: THROMBOSIS PROPHYLAXIS
     Route: 048
     Dates: start: 20110729
  6. OLMETEC [Concomitant]
     Indication: HYPERTENSION
     Route: 048
     Dates: start: 20110729
  7. FAMOGAST D [Concomitant]
     Indication: GASTRITIS PROPHYLAXIS
     Route: 048
     Dates: start: 20110729
  8. ARTIST [Concomitant]
     Indication: ARTERIOSPASM CORONARY
     Route: 048
     Dates: start: 20110729, end: 20110810
  9. ARTIST [Concomitant]
     Indication: ARTERIOSPASM CORONARY
     Route: 048
     Dates: start: 20110811
  10. NOVO RAPID [Concomitant]
     Indication: TYPE 2 DIABETES MELLITUS
     Route: 058

REACTIONS (1)
  - Cerebral haemorrhage [Fatal]
